FAERS Safety Report 17015513 (Version 1)
Quarter: 2019Q4

REPORT INFORMATION
  Report Type: Spontaneous
  Country: GB (occurrence: GB)
  Receive Date: 20191111
  Receipt Date: 20191111
  Transmission Date: 20200122
  Serious: Yes (Other)
  Sender: FDA-Public Use
  Company Number: GB-PFIZER INC-2019482558

PATIENT
  Age: 48 Year
  Sex: Male
  Weight: 102 kg

DRUGS (4)
  1. OMEPRAZOLE. [Suspect]
     Active Substance: OMEPRAZOLE
     Indication: DYSPHAGIA
     Dosage: 20 MILLIGRAM, QD
     Route: 048
     Dates: start: 20171108, end: 20171208
  2. ACIDEX [CALCIUM CARBONATE;SODIUM ALGINATE;SODIUM BICARBONATE] [Concomitant]
     Dosage: 5 MILLILITER
     Dates: start: 20180703
  3. CYCLIZINE [Concomitant]
     Active Substance: CYCLIZINE
     Dosage: 150 MILLIGRAM, QD
     Dates: start: 20180627
  4. PANTOPRAZOLE [Suspect]
     Active Substance: PANTOPRAZOLE
     Indication: DYSPHAGIA
     Dosage: 80 MILLIGRAM, QD
     Route: 048
     Dates: start: 20180627

REACTIONS (2)
  - Tinnitus [Unknown]
  - Deafness [Unknown]
